FAERS Safety Report 25043319 (Version 1)
Quarter: 2025Q1

REPORT INFORMATION
  Report Type: Report from Study
  Country: CA (occurrence: CA)
  Receive Date: 20250305
  Receipt Date: 20250305
  Transmission Date: 20250409
  Serious: Yes (Other)
  Sender: JOHNSON AND JOHNSON
  Company Number: CA-JNJFOC-20250184449

PATIENT
  Age: 15 Year
  Sex: Male
  Weight: 48 kg

DRUGS (1)
  1. REMICADE [Suspect]
     Active Substance: INFLIXIMAB
     Indication: Crohn^s disease
     Route: 041

REACTIONS (3)
  - Crohn^s disease [Unknown]
  - Influenza [Recovered/Resolved]
  - Urticaria [Unknown]

NARRATIVE: CASE EVENT DATE: 20250119
